FAERS Safety Report 6025319-2 (Version None)
Quarter: 2008Q4

REPORT INFORMATION
  Report Type: 
  Country: None (occurrence: None)
  Receive Date: 20081229
  Receipt Date: 20081215
  Transmission Date: 20090506
  Serious: Yes (Death, Hospitalization)
  Sender: FDA-Public Use
  Company Number: 2008AP003445

PATIENT
  Age: 80 Year
  Sex: Male

DRUGS (5)
  1. SERTRALINE HYDROCHLORIDE [Suspect]
     Indication: DEPRESSION
     Dosage: 100 MG; PO
     Route: 048
     Dates: start: 20080907, end: 20081006
  2. ACETYLSALICYLIC ACID SRT [Concomitant]
  3. FELODIPINE [Concomitant]
  4. METFORMIN HCL [Concomitant]
  5. TAMSULOSIN HCL [Concomitant]

REACTIONS (2)
  - HYPONATRAEMIA [None]
  - PNEUMONIA [None]
